FAERS Safety Report 4384401-6 (Version None)
Quarter: 2004Q2

REPORT INFORMATION
  Report Type: 
  Country: None (occurrence: None)
  Receive Date: 20040621
  Receipt Date: 20040607
  Transmission Date: 20050107
  Serious: Yes (Death, Hospitalization)
  Sender: FDA-Public Use
  Company Number: 2004216840DE

PATIENT
  Age: 92 Year
  Sex: Female

DRUGS (5)
  1. BEXTRA [Suspect]
     Indication: RHEUMATOID ARTHRITIS
     Dosage: 20 MG, QD, ORAL
     Route: 048
     Dates: start: 20040409, end: 20040420
  2. OMPERAZOLE [Concomitant]
  3. DIGITOXIN TAB [Concomitant]
  4. CONCOR [Concomitant]
  5. RAMIPRIL [Concomitant]

REACTIONS (10)
  - ARTERIAL HAEMORRHAGE [None]
  - CARDIOVASCULAR DISORDER [None]
  - CIRCULATORY COLLAPSE [None]
  - DEPRESSED LEVEL OF CONSCIOUSNESS [None]
  - DUODENAL ULCER HAEMORRHAGE [None]
  - HYPOTENSION [None]
  - PROTHROMBIN TIME PROLONGED [None]
  - RECTAL ULCER HAEMORRHAGE [None]
  - REFUSAL OF TREATMENT BY PATIENT [None]
  - WHITE BLOOD CELL COUNT INCREASED [None]
